FAERS Safety Report 5310806-2 (Version None)
Quarter: 2007Q2

REPORT INFORMATION
  Report Type: 
  Country: None (occurrence: None)
  Receive Date: 20070428
  Receipt Date: 20070417
  Transmission Date: 20071010
  Serious: Yes (Death, Hospitalization, Other)
  Sender: FDA-Public Use
  Company Number: AU-PFIZER INC-2007012361

PATIENT
  Sex: Male

DRUGS (2)
  1. SILDENAFIL (PAH) [Suspect]
  2. PLACEBO [Suspect]

REACTIONS (4)
  - CARDIAC FAILURE CONGESTIVE [None]
  - DEATH [None]
  - ELECTROLYTE IMBALANCE [None]
  - HYPOKALAEMIA [None]
